FAERS Safety Report 5469826-X (Version None)
Quarter: 2007Q3

REPORT INFORMATION
  Report Type: 
  Country: None (occurrence: None)
  Receive Date: 20070927
  Receipt Date: 20070615
  Transmission Date: 20080115
  Serious: No
  Sender: FDA-Public Use
  Company Number: US-BRISTOL-MYERS SQUIBB COMPANY-13816947

PATIENT

DRUGS (1)
  1. DASATINIB [Suspect]

REACTIONS (1)
  - ADVERSE EVENT [None]
